FAERS Safety Report 6745299-1 (Version None)
Quarter: 2010Q2

REPORT INFORMATION
  Report Type: 
  Country: None (occurrence: None)
  Receive Date: 20100528
  Receipt Date: 20100519
  Transmission Date: 20101027
  Serious: No
  Sender: FDA-Public Use
  Company Number: US-BIOGENIDEC-2010BI017001

PATIENT
  Age: 44 Year
  Sex: Female

DRUGS (2)
  1. TYSABRI [Suspect]
     Indication: MULTIPLE SCLEROSIS
     Route: 042
     Dates: start: 20100225, end: 20100326
  2. AVONEX [Concomitant]
     Indication: MULTIPLE SCLEROSIS
     Route: 030
     Dates: start: 20020731

REACTIONS (10)
  - ABDOMINAL PAIN UPPER [None]
  - APHAGIA [None]
  - BONE PAIN [None]
  - EAR INFECTION [None]
  - MYALGIA [None]
  - RASH [None]
  - SINUSITIS [None]
  - THROAT TIGHTNESS [None]
  - UPPER RESPIRATORY TRACT INFECTION [None]
  - URINARY TRACT INFECTION [None]
